FAERS Safety Report 12667948 (Version 1)
Quarter: 2016Q3

REPORT INFORMATION
  Report Type: Spontaneous
  Country: CN (occurrence: CN)
  Receive Date: 20160819
  Receipt Date: 20160819
  Transmission Date: 20161109
  Serious: Yes (Other)
  Sender: FDA-Public Use
  Company Number: CN-PFIZER INC-2016388565

PATIENT
  Age: 67 Year
  Sex: Female
  Weight: 55 kg

DRUGS (4)
  1. AESCUVEN [Concomitant]
     Indication: OSTEOARTHROPATHY
     Dosage: 1 DF, 2X/DAY
     Route: 048
     Dates: start: 20160509, end: 20160516
  2. XUE SAI TONG PIAN [Concomitant]
     Indication: OSTEOARTHROPATHY
     Dosage: 0.3 G, 1X/DAY
     Route: 041
     Dates: start: 20160509, end: 20160516
  3. MECOBALAMINE [Concomitant]
     Indication: OSTEOARTHROPATHY
     Dosage: 0.5 MG, 1X/DAY
     Route: 041
     Dates: start: 20160509, end: 20160516
  4. CELEBREX [Suspect]
     Active Substance: CELECOXIB
     Indication: OSTEOARTHROPATHY
     Dosage: 0.2 G, 1X/DAY
     Route: 048
     Dates: start: 20160509, end: 20160513

REACTIONS (3)
  - Micturition urgency [Recovered/Resolved]
  - Pollakiuria [Recovered/Resolved]
  - Urinary tract infection [Recovered/Resolved]

NARRATIVE: CASE EVENT DATE: 20160514
